FAERS Safety Report 18380610 (Version 3)
Quarter: 2020Q4

REPORT INFORMATION
  Report Type: Other
  Country: SK (occurrence: SK)
  Receive Date: 20201014
  Receipt Date: 20201024
  Transmission Date: 20210114
  Serious: Yes (Other)
  Sender: FDA-Public Use
  Company Number: SK-ROCHE-2692083

PATIENT
  Age: 65 Year
  Sex: Male

DRUGS (2)
  1. RITUXIMAB. [Suspect]
     Active Substance: RITUXIMAB
     Indication: LYMPHOMA
     Route: 065
     Dates: start: 201909, end: 201911
  2. BENDAMUSTINE HYDROCHLORIDE. [Suspect]
     Active Substance: BENDAMUSTINE HYDROCHLORIDE
     Indication: LYMPHOMA
     Dosage: 4 CYCLES
     Route: 065
     Dates: start: 201909, end: 201911

REACTIONS (4)
  - Nervous system disorder [Unknown]
  - Polyneuropathy [Unknown]
  - Progressive multifocal leukoencephalopathy [Unknown]
  - Paresis [Unknown]

NARRATIVE: CASE EVENT DATE: 202001
